FAERS Safety Report 5813697-6 (Version None)
Quarter: 2008Q3

REPORT INFORMATION
  Report Type: 
  Country: None (occurrence: None)
  Receive Date: 20080716
  Receipt Date: 20080716
  Transmission Date: 20090109
  Serious: Yes (Hospitalization)
  Sender: FDA-Public Use
  Company Number: None

PATIENT
  Sex: Male
  Weight: 93 kg

DRUGS (7)
  1. TEMOZOLOMIDE [Suspect]
     Indication: ACUTE MYELOID LEUKAEMIA
     Dosage: 100MG/M2 QD PO
     Route: 048
     Dates: start: 20080627, end: 20080710
  2. TEMOZOLOMIDE [Suspect]
     Indication: ACUTE MYELOID LEUKAEMIA
     Dosage: 200MG/M2 (CONSOLID.) QD PO
     Route: 048
     Dates: start: 20080711
  3. COREG [Concomitant]
  4. OMEPRAZOLE [Concomitant]
  5. AVODART [Concomitant]
  6. VYTORIN [Concomitant]
  7. ALLOPURINOL [Concomitant]

REACTIONS (2)
  - FEBRILE NEUTROPENIA [None]
  - ILL-DEFINED DISORDER [None]
